FAERS Safety Report 5344873-7 (Version None)
Quarter: 2007Q2

REPORT INFORMATION
  Report Type: 
  Country: None (occurrence: None)
  Receive Date: 20070416
  Receipt Date: 20070117
  Transmission Date: 20071010
  Serious: No
  Sender: FDA-Public Use
  Company Number: 2007SP000203

PATIENT
  Age: 42 Year
  Sex: Female
  Weight: 56.6996 kg

DRUGS (11)
  1. LUNESTA [Suspect]
     Indication: INSOMNIA
     Dosage: 3 MG;HS;ORAL
     Route: 048
     Dates: start: 20060501
  2. SYNTHROID [Concomitant]
  3. BUSPAR [Concomitant]
  4. XANAX [Concomitant]
  5. SEROQUEL [Concomitant]
  6. RELPAX [Concomitant]
  7. TEGASEROD [Concomitant]
  8. NEURONTIN [Concomitant]
  9. MORPHINE [Concomitant]
  10. ACETAMINOPHEN W/ CODEINE [Concomitant]
  11. PREVACID [Concomitant]

REACTIONS (2)
  - DYSGEUSIA [None]
  - FOOD CRAVING [None]
